FAERS Safety Report 20513769 (Version 1)
Quarter: 2022Q1

REPORT INFORMATION
  Report Type: Spontaneous
  Country: US (occurrence: US)
  Receive Date: 20220224
  Receipt Date: 20220224
  Transmission Date: 20220423
  Serious: No
  Sender: FDA-Public Use
  Company Number: US-AMNEAL PHARMACEUTICALS-2021-AMRX-02480

PATIENT
  Age: 74 Year
  Sex: Male
  Weight: 85.714 kg

DRUGS (4)
  1. RYTARY [Suspect]
     Active Substance: CARBIDOPA\LEVODOPA
     Indication: Parkinson^s disease
     Dosage: 3 CAPSULES, 3X/DAY, AT EVERY 4 HRS
     Route: 048
     Dates: start: 20210620, end: 202106
  2. RYTARY [Suspect]
     Active Substance: CARBIDOPA\LEVODOPA
     Dosage: 3 CAPSULES, 3X/DAY, AT EVERY 6.5-7 HOURS
     Route: 048
     Dates: start: 202106, end: 2021
  3. RYTARY [Suspect]
     Active Substance: CARBIDOPA\LEVODOPA
     Dosage: 2 CAPSULES, TID
     Route: 048
     Dates: start: 20210629, end: 2021
  4. RYTARY [Suspect]
     Active Substance: CARBIDOPA\LEVODOPA
     Dosage: 3 CAPSULES, 3X/DAY, AT EVERY 4 HRS
     Route: 048
     Dates: start: 2021

REACTIONS (3)
  - Rash [Not Recovered/Not Resolved]
  - Blood pressure decreased [Recovering/Resolving]
  - Hypersomnia [Recovered/Resolved]

NARRATIVE: CASE EVENT DATE: 20210601
